FAERS Safety Report 7843186-9 (Version None)
Quarter: 2011Q4

REPORT INFORMATION
  Report Type: 
  Country: None (occurrence: None)
  Receive Date: 20111025
  Receipt Date: 20111018
  Transmission Date: 20120403
  Serious: No
  Sender: FDA-Public Use
  Company Number: US-PFIZER INC-2011164136

PATIENT
  Sex: Female
  Weight: 50.794 kg

DRUGS (9)
  1. SILICA [Concomitant]
     Dosage: UNK
  2. VORICONAZOLE [Suspect]
     Indication: FUNGAL INFECTION
     Dosage: UNK
     Route: 048
     Dates: start: 20110601
  3. COLCHICINE [Concomitant]
     Indication: ARTHRITIS
     Dosage: UNK
  4. CALCIUM [Concomitant]
     Dosage: UNK
  5. METOPROLOL [Concomitant]
     Indication: SURGERY
     Dosage: UNK
  6. ACETYLSALICYLIC ACID [Concomitant]
     Dosage: UNK
  7. FISH OIL [Concomitant]
     Dosage: UNK
  8. PREDNISONE [Concomitant]
     Indication: FUNGAL INFECTION
     Dosage: UNK
  9. VITAMIN D [Concomitant]
     Dosage: UNK

REACTIONS (1)
  - DRUG LEVEL DECREASED [None]
